FAERS Safety Report 10907866 (Version 1)
Quarter: 2015Q1

REPORT INFORMATION
  Report Type: Spontaneous
  Country: US (occurrence: US)
  Receive Date: 20150312
  Receipt Date: 20150312
  Transmission Date: 20150721
  Serious: No
  Sender: FDA-Public Use
  Company Number: US-INCYTE CORPORATION-2015IN000025

PATIENT
  Age: 81 Year
  Sex: Female

DRUGS (7)
  1. TYLENOL [Concomitant]
     Active Substance: ACETAMINOPHEN
     Indication: HERPES ZOSTER
     Dosage: AS NEEDED
  2. HEMOCYTE PLUS [Concomitant]
     Indication: BLOOD IRON
  3. METOPROLOL [Concomitant]
     Active Substance: METOPROLOL
  4. BABY ASPIRIN [Concomitant]
     Active Substance: ASPIRIN
  5. SYNTHROID [Concomitant]
     Active Substance: LEVOTHYROXINE SODIUM
  6. JAKAFI [Suspect]
     Active Substance: RUXOLITINIB
     Indication: MYELOFIBROSIS
     Dosage: 10 MG IN AM AND 20 MG IN PM
     Route: 048
     Dates: start: 201109
  7. MULTIVITAMIN                       /00097801/ [Concomitant]
     Active Substance: VITAMINS

REACTIONS (3)
  - Weight increased [Unknown]
  - Post herpetic neuralgia [Unknown]
  - Back pain [Unknown]

NARRATIVE: CASE EVENT DATE: 201412
